FAERS Safety Report 8973937 (Version 3)
Quarter: 2013Q1

REPORT INFORMATION
  Report Type: Report from Study
  Country: US (occurrence: US)
  Receive Date: 20121218
  Receipt Date: 20130227
  Transmission Date: 20140127
  Serious: Yes (Hospitalization)
  Sender: FDA-Public Use
  Company Number: US-PFIZER INC-US-WYE-H09099009

PATIENT
  Age: 34 Year
  Sex: Female
  Weight: 114.8 kg

DRUGS (22)
  1. TRU-015 [Suspect]
     Indication: RHEUMATOID ARTHRITIS
     Dosage: 800 MG, EVERY 12 WEEKS, BASELINE WEEK 12, 24, 36
     Route: 042
     Dates: start: 20081124, end: 20081124
  2. TRU-015 [Suspect]
     Dosage: 800 MG, EVERY 12 WEEKS
     Route: 042
     Dates: start: 20090511, end: 20090511
  3. PLACEBO [Suspect]
     Indication: RHEUMATOID ARTHRITIS
     Dosage: UNK
     Route: 042
     Dates: start: 20090211, end: 20090211
  4. PLACEBO [Suspect]
     Dosage: UNK
     Route: 042
     Dates: start: 20090803, end: 20090803
  5. SOLU-MEDRONE [Suspect]
     Indication: RHEUMATOID ARTHRITIS
     Dosage: 100 MG, 1X/DAY
     Route: 042
     Dates: start: 20081124, end: 20081124
  6. SOLU-MEDRONE [Suspect]
     Dosage: 100 MG, 1X/DAY
     Route: 042
     Dates: start: 20090211, end: 20090211
  7. SOLU-MEDRONE [Suspect]
     Dosage: 100 MG, 1X/DAY
     Route: 042
     Dates: start: 20090511, end: 20090511
  8. PLACEBO [Suspect]
     Indication: RHEUMATOID ARTHRITIS
     Dosage: UNK
     Route: 042
     Dates: start: 20090803, end: 20090803
  9. PREDNISONE [Suspect]
     Indication: RHEUMATOID ARTHRITIS
     Dosage: 20 MG, 1X/DAY
     Route: 048
     Dates: start: 20081122, end: 20081124
  10. PREDNISONE [Suspect]
     Dosage: 20 MG, 1X/DAY
     Route: 048
     Dates: start: 20090209, end: 20090211
  11. PREDNISONE [Suspect]
     Dosage: 20 MG, 1X/DAY
     Route: 048
     Dates: start: 20090509, end: 20090511
  12. PLACEBO [Suspect]
     Indication: RHEUMATOID ARTHRITIS
     Dosage: UNK
     Route: 048
     Dates: start: 20090801, end: 20090803
  13. METHOTREXATE SODIUM [Suspect]
     Indication: RHEUMATOID ARTHRITIS
     Dosage: 17.5 MG, WEEKLY
     Route: 065
     Dates: start: 20061220
  14. ARIPIPRAZOLE [Concomitant]
     Dosage: UNK
     Route: 065
     Dates: start: 200806
  15. CYCLOBENZAPRINE [Concomitant]
     Dosage: UNK
     Route: 065
     Dates: start: 20040823
  16. ETHINYLESTRADIOL/NORETHISTERONE ACETATE [Concomitant]
     Dosage: UNK
     Route: 065
     Dates: start: 20081129
  17. FLUOXETINE HYDROCHLORIDE [Concomitant]
     Dosage: UNK
     Route: 065
     Dates: start: 200808
  18. FOLIC ACID [Concomitant]
     Dosage: UNK
     Route: 065
     Dates: start: 20041014
  19. MELOXICAM [Concomitant]
     Dosage: UNK
     Route: 063
     Dates: start: 20041012
  20. MODAFINIL [Concomitant]
     Dosage: UNK
     Route: 065
     Dates: start: 200808
  21. PREGABALIN [Concomitant]
     Dosage: UNK
     Route: 065
     Dates: start: 20080104
  22. VALACICLOVIR HYDROCHLORIDE [Concomitant]
     Dosage: UNK
     Route: 065
     Dates: start: 20081210

REACTIONS (3)
  - Cholecystitis acute [Recovered/Resolved]
  - Cholecystitis chronic [Recovered/Resolved]
  - Cholelithiasis [Recovered/Resolved]
